FAERS Safety Report 8547034-3 (Version None)
Quarter: 2012Q3

REPORT INFORMATION
  Report Type: 
  Country: None (occurrence: None)
  Receive Date: 20120727
  Receipt Date: 20120312
  Transmission Date: 20120928
  Serious: No
  Sender: FDA-Public Use
  Company Number: US-ASTRAZENECA-2012SE17142

PATIENT
  Age: 37 Year
  Sex: Female
  Weight: 72.6 kg

DRUGS (4)
  1. ALPRAZOLAM [Concomitant]
     Indication: ANXIETY
  2. PAXIL [Concomitant]
     Indication: ANTIDEPRESSANT THERAPY
  3. SEROQUEL XR [Suspect]
     Indication: ANXIETY
     Route: 048
     Dates: start: 20120213
  4. SEROQUEL XR [Suspect]
     Indication: BIPOLAR DISORDER
     Route: 048
     Dates: start: 20120213

REACTIONS (2)
  - OFF LABEL USE [None]
  - IRRITABLE BOWEL SYNDROME [None]
